FAERS Safety Report 24333717 (Version 1)
Quarter: 2024Q3

REPORT INFORMATION
  Report Type: Spontaneous
  Country: CN (occurrence: CN)
  Receive Date: 20240918
  Receipt Date: 20240918
  Transmission Date: 20241017
  Serious: Yes (Hospitalization)
  Sender: PURDUE
  Company Number: CN-NAPPMUNDI-GBR-2024-0119707

PATIENT
  Age: 57 Year
  Sex: Female
  Weight: 50.5 kg

DRUGS (1)
  1. OXYCONTIN [Suspect]
     Active Substance: OXYCODONE HYDROCHLORIDE
     Indication: Analgesic therapy
     Dosage: 10 MILLIGRAM, BID (TWICE A DAY)
     Route: 048
     Dates: start: 20240823

REACTIONS (1)
  - Dyschezia [Unknown]

NARRATIVE: CASE EVENT DATE: 20240827
